FAERS Safety Report 4278479-8 (Version None)
Quarter: 2004Q1

REPORT INFORMATION
  Report Type: 
  Country: None (occurrence: None)
  Receive Date: 20040123
  Receipt Date: 20040107
  Transmission Date: 20041129
  Serious: Yes (Life-Threatening, Hospitalization)
  Sender: FDA-Public Use
  Company Number: WAES 0401FRA00015

PATIENT
  Age: 79 Year
  Sex: Male
  Weight: 80 kg

DRUGS (7)
  1. ACEBUTOLOL HYDROCHLORIDE [Concomitant]
     Indication: HYPERTENSION
     Route: 048
  2. ACETAMINOPHEN [Concomitant]
     Route: 048
  3. ALLOPURINOL [Concomitant]
     Indication: HYPERURICAEMIA
     Route: 048
  4. LEUPROLIDE ACETATE [Suspect]
     Indication: PROSTATE CANCER
     Route: 058
  5. NICARDIPINE HYDROCHLORIDE [Concomitant]
     Indication: HYPERTENSION
     Route: 048
  6. VIOXX [Suspect]
     Indication: SPINAL COLUMN STENOSIS
     Route: 048
  7. TRAMADOL HYDROCHLORIDE [Concomitant]
     Route: 048

REACTIONS (7)
  - ABSCESS [None]
  - COUGH [None]
  - DERMATITIS [None]
  - INJECTION SITE INFECTION [None]
  - INJECTION SITE RASH [None]
  - RASH VESICULAR [None]
  - STAPHYLOCOCCAL ABSCESS [None]
